FAERS Safety Report 19561538 (Version 4)
Quarter: 2022Q4

REPORT INFORMATION
  Report Type: Spontaneous
  Country: US (occurrence: None)
  Receive Date: 20210714
  Receipt Date: 20221013
  Transmission Date: 20230113
  Serious: Yes (Hospitalization)
  Sender: FDA-Public Use
  Company Number: US-ROCHE-2867076

PATIENT
  Age: 61 Year
  Sex: Male
  Weight: 75.818 kg

DRUGS (5)
  1. PHESGO [Suspect]
     Active Substance: HYALURONIDASE-ZZXF\PERTUZUMAB\TRASTUZUMAB
     Indication: Gastric cancer
     Route: 058
     Dates: start: 202012
  2. PERJETA [Suspect]
     Active Substance: PERTUZUMAB
     Indication: Gastric cancer
     Route: 065
     Dates: start: 20191022, end: 202012
  3. HERCEPTIN [Suspect]
     Active Substance: TRASTUZUMAB
     Indication: Gastric cancer
     Dosage: FOLLOWED BY 6 MG/KG EVERY THREE WEEKS
     Route: 065
     Dates: start: 20191022, end: 202012
  4. HERCEPTIN [Suspect]
     Active Substance: TRASTUZUMAB
     Indication: Metastasis
  5. APIXABAN [Concomitant]
     Active Substance: APIXABAN

REACTIONS (3)
  - Cholangitis [Recovered/Resolved]
  - Febrile neutropenia [Recovered/Resolved]
  - Off label use [Unknown]

NARRATIVE: CASE EVENT DATE: 20210202
